FAERS Safety Report 6570574-3 (Version None)
Quarter: 2010Q1

REPORT INFORMATION
  Report Type: 
  Country: None (occurrence: None)
  Receive Date: 20100204
  Receipt Date: 20100122
  Transmission Date: 20100710
  Serious: Yes (Hospitalization)
  Sender: FDA-Public Use
  Company Number: US-ELI_LILLY_AND_COMPANY-US201001005366

PATIENT
  Sex: Female

DRUGS (3)
  1. CYMBALTA [Suspect]
     Dosage: 60 MG, 2/D
  2. LEVAQUIN [Concomitant]
  3. NEURONTIN [Concomitant]

REACTIONS (6)
  - CREATININE RENAL CLEARANCE INCREASED [None]
  - DRUG INTERACTION [None]
  - HALLUCINATION, VISUAL [None]
  - HYPOXIA [None]
  - NEPHRECTOMY [None]
  - PNEUMONIA [None]
